FAERS Safety Report 6598552-9 (Version None)
Quarter: 2010Q1

REPORT INFORMATION
  Report Type: 
  Country: None (occurrence: None)
  Receive Date: 20100224
  Receipt Date: 20050107
  Transmission Date: 20100710
  Serious: No
  Sender: FDA-Public Use
  Company Number: US-ALLERGAN-200500328

PATIENT
  Sex: Female

DRUGS (1)
  1. BOTOX COSMETIC [Suspect]
     Indication: SKIN WRINKLING
     Dosage: INJ INTO CROWS FEET, FOREHEAD AND GLABELLA
     Route: 030
     Dates: start: 20041201

REACTIONS (2)
  - EYELID PTOSIS [None]
  - VISION BLURRED [None]
